FAERS Safety Report 7980258-2 (Version None)
Quarter: 2011Q4

REPORT INFORMATION
  Report Type: 
  Country: None (occurrence: None)
  Receive Date: 20111129
  Receipt Date: 20110617
  Transmission Date: 20120403
  Serious: Yes (Hospitalization)
  Sender: FDA-Public Use
  Company Number: FK201101198

PATIENT
  Age: 37 Year
  Sex: Female
  Weight: 58.9 kg

DRUGS (7)
  1. ONDANSETRON [Concomitant]
  2. FENTANYL [Concomitant]
  3. CISPLATIN [Suspect]
     Indication: METASTATIC GASTRIC CANCER
     Dosage: 126 MG, 1 IN 21 D, INTRAVENOUS DRIP
     Route: 041
     Dates: start: 20110421
  4. HYDROCODONE/ ACETAMINOPHEN (ACETAMINOPHEN W/HYDROCODONE BITARTRATE) (A [Concomitant]
  5. PROMETHAZINE (PROMETHAZINE) (PROMETHAZINE) [Concomitant]
  6. FLUOROURACIL [Suspect]
     Indication: METASTATIC GASTRIC CANCER
     Dosage: 6320 MG, 1 IN 21 D, INTRAVENOUS DRIP
     Route: 041
     Dates: start: 20110421
  7. MIRTAZAPINE [Concomitant]

REACTIONS (3)
  - HYPOKALAEMIA [None]
  - DEHYDRATION [None]
  - VOMITING [None]
